FAERS Safety Report 5403245-7 (Version None)
Quarter: 2007Q3

REPORT INFORMATION
  Report Type: 
  Country: None (occurrence: None)
  Receive Date: 20070801
  Receipt Date: 20070720
  Transmission Date: 20080115
  Serious: Yes (Other)
  Sender: FDA-Public Use
  Company Number: AU-PFIZER INC-2007061448

PATIENT
  Age: 15 Year
  Sex: Female

DRUGS (2)
  1. LYRICA [Suspect]
     Indication: PERIARTHRITIS
     Route: 048
     Dates: start: 20070521, end: 20070618
  2. NORTRIPTYLINE HCL [Concomitant]

REACTIONS (3)
  - CRYING [None]
  - MALAISE [None]
  - MOOD ALTERED [None]
